FAERS Safety Report 12544840 (Version 2)
Quarter: 2016Q3

REPORT INFORMATION
  Report Type: Spontaneous
  Country: GB (occurrence: GB)
  Receive Date: 20160711
  Receipt Date: 20160901
  Transmission Date: 20161109
  Serious: Yes (Hospitalization, Other)
  Sender: FDA-Public Use
  Company Number: GB-VIIV HEALTHCARE LIMITED-GB2016GSK095939

PATIENT
  Age: 21 Year
  Sex: Female

DRUGS (3)
  1. DOLUTEGRAVIR SODIUM [Suspect]
     Active Substance: DOLUTEGRAVIR SODIUM
     Indication: HIV INFECTION
     Dosage: UNK
  2. DARUNAVIR [Concomitant]
     Active Substance: DARUNAVIR
  3. RITONAVIR. [Concomitant]
     Active Substance: RITONAVIR

REACTIONS (3)
  - Haemorrhage [Unknown]
  - Treatment noncompliance [Unknown]
  - Drug resistance [Unknown]
